FAERS Safety Report 9862411 (Version 4)
Quarter: 2014Q2

REPORT INFORMATION
  Report Type: Spontaneous
  Country: FR (occurrence: FR)
  Receive Date: 20140203
  Receipt Date: 20140502
  Transmission Date: 20141212
  Serious: Yes (Life-Threatening, Hospitalization)
  Sender: FDA-Public Use
  Company Number: FR-B.I. PHARMACEUTICALS,INC./RIDGEFIELD-2014-BI-03902FF

PATIENT
  Age: 78 Year
  Sex: Male

DRUGS (15)
  1. PRADAXA [Suspect]
     Indication: ATRIAL FIBRILLATION
     Dosage: 220 MG
     Route: 048
     Dates: start: 20121026, end: 20140120
  2. PRADAXA [Suspect]
     Indication: ATRIAL FLUTTER
  3. AMLOR (AMLODIPINE) [Concomitant]
     Indication: HYPERTENSION
     Dosage: 5 MG
     Route: 048
  4. OLMESARTAN [Concomitant]
     Route: 065
  5. ESIDREX [Concomitant]
     Dosage: 25 MG
     Route: 048
  6. SOTALOL [Concomitant]
     Dosage: 80 MG
     Route: 048
  7. CRESTOR 5MG [Concomitant]
     Route: 048
  8. ESOMEPRAZOLE [Concomitant]
     Dosage: 20 MG
     Route: 048
  9. CHIBRO-PROSCAR [Concomitant]
     Indication: PROSTATIC DISORDER
     Route: 048
  10. CHIBRO-PROSCAR [Concomitant]
     Indication: URINARY RETENTION
  11. JOSIR [Concomitant]
     Indication: PROSTATIC DISORDER
     Route: 048
  12. JOSIR [Concomitant]
     Indication: URINARY RETENTION
  13. IRBESARTAN [Concomitant]
     Dosage: 150 MG
     Route: 048
     Dates: end: 20140131
  14. DIFFU K [Concomitant]
     Dosage: 1.2 G
     Route: 048
  15. ZOLPIDEM [Concomitant]
     Route: 048

REACTIONS (5)
  - Haemorrhage intracranial [Not Recovered/Not Resolved]
  - Haemorrhagic stroke [Not Recovered/Not Resolved]
  - Hemiplegia [Unknown]
  - Aphasia [Unknown]
  - Pelvic fracture [Recovered/Resolved]
